FAERS Safety Report 7946217-0 (Version None)
Quarter: 2011Q4

REPORT INFORMATION
  Report Type: 
  Country: None (occurrence: None)
  Receive Date: 20111123
  Receipt Date: 20111111
  Transmission Date: 20120403
  Serious: Yes (Hospitalization)
  Sender: FDA-Public Use
  Company Number: 2011261891

PATIENT
  Age: 44 Year
  Sex: Female

DRUGS (2)
  1. DALTEPARIN SODIUM [Suspect]
     Indication: LUNG NEOPLASM MALIGNANT
     Dates: start: 20110922
  2. ACETAMINOPHEN AND CODEINE PHOSPHATE [Concomitant]

REACTIONS (5)
  - NEPHROLITHIASIS [None]
  - RENAL COLIC [None]
  - BACK PAIN [None]
  - GROIN PAIN [None]
  - MUSCULOSKELETAL PAIN [None]
